FAERS Safety Report 8807128 (Version 1)
Quarter: 2012Q4

REPORT INFORMATION
  Report Type: 
  Country: IN (occurrence: IN)
  Receive Date: 20120925
  Receipt Date: 20120925
  Transmission Date: 20130627
  Serious: Yes (Death)
  Sender: FDA-Public Use
  Company Number: PHHO2004IN10589

PATIENT
  Age: 27 Year
  Sex: Male

DRUGS (3)
  1. GLIVEC [Suspect]
     Indication: BLAST CRISIS IN MYELOGENOUS LEUKAEMIA
     Dosage: UNK UKN, UNK
     Dates: start: 20040224
  2. GLIVEC [Suspect]
     Dosage: 300 mg, QD
     Route: 048
     Dates: start: 20040312, end: 20040504
  3. GLIVEC [Suspect]
     Dosage: 600 mg, QD
     Route: 048
     Dates: start: 20040505, end: 20040515

REACTIONS (1)
  - Cardio-respiratory arrest [Fatal]
